APPROVED DRUG PRODUCT: EPTIFIBATIDE
Active Ingredient: EPTIFIBATIDE
Strength: 75MG/100ML
Dosage Form/Route: INJECTABLE;INJECTION
Application: A205557 | Product #002
Applicant: ACCORD HEALTHCARE INC
Approved: Nov 6, 2017 | RLD: No | RS: No | Type: DISCN